FAERS Safety Report 20676519 (Version 1)
Quarter: 2022Q2

REPORT INFORMATION
  Report Type: Spontaneous
  Country: US (occurrence: US)
  Receive Date: 20220405
  Receipt Date: 20220405
  Transmission Date: 20220721
  Serious: Yes (Other)
  Sender: FDA-Public Use
  Company Number: US-BRISTOL-MYERS SQUIBB COMPANY-2022-011934

PATIENT
  Age: 59 Year
  Sex: Male

DRUGS (1)
  1. ABRAXANE [Suspect]
     Active Substance: PACLITAXEL
     Indication: Product used for unknown indication
     Dosage: DOSE : INFUSE 181 MG;     FREQ : EVERY 7 DAYS
     Route: 042

REACTIONS (2)
  - Haematological malignancy [Unknown]
  - Dehydration [Unknown]

NARRATIVE: CASE EVENT DATE: 20220301
